FAERS Safety Report 20622720 (Version 1)
Quarter: 2022Q1

REPORT INFORMATION
  Report Type: Spontaneous
  Country: US (occurrence: US)
  Receive Date: 20220322
  Receipt Date: 20220322
  Transmission Date: 20220423
  Serious: No
  Sender: FDA-Public Use
  Company Number: US-ALLERGAN-2143178US

PATIENT
  Sex: Female

DRUGS (2)
  1. LATISSE [Suspect]
     Active Substance: BIMATOPROST
     Indication: Product used for unknown indication
     Dosage: UNK, QPM
  2. LATISSE [Suspect]
     Active Substance: BIMATOPROST
     Dosage: UNK, QOD

REACTIONS (3)
  - Inappropriate schedule of product administration [Unknown]
  - Madarosis [Unknown]
  - Drug ineffective [Unknown]
